FAERS Safety Report 16689780 (Version 2)
Quarter: 2020Q1

REPORT INFORMATION
  Report Type: Spontaneous
  Country: US (occurrence: US)
  Receive Date: 20190809
  Receipt Date: 20200219
  Transmission Date: 20200409
  Serious: Yes (Other)
  Sender: FDA-Public Use
  Company Number: US-BAUSCH-BL-2019-022251

PATIENT
  Age: 67 Year
  Sex: Female
  Weight: 59.02 kg

DRUGS (6)
  1. LOSARTAN POTASSIUM. [Suspect]
     Active Substance: LOSARTAN POTASSIUM
     Indication: HYPERTENSION
     Route: 065
     Dates: start: 201906
  2. TIMOPTIC [Suspect]
     Active Substance: TIMOLOL MALEATE
     Indication: INTRAOCULAR PRESSURE INCREASED
     Dosage: STOPPED TAKING THE SUSPECT PRODUCT FOR A WEEK.
     Route: 065
     Dates: end: 2019
  3. TIMOPTIC [Suspect]
     Active Substance: TIMOLOL MALEATE
     Route: 065
     Dates: start: 20190710
  4. MULTIVITAMINS [Concomitant]
     Active Substance: VITAMINS
     Indication: PRODUCT USED FOR UNKNOWN INDICATION
  5. LOSARTAN. [Concomitant]
     Active Substance: LOSARTAN
     Indication: PRODUCT USED FOR UNKNOWN INDICATION
  6. LATANOPROST OPHTHALMIC SOLUTION 0.005% [Suspect]
     Active Substance: LATANOPROST
     Indication: OCULAR HYPERTENSION
     Dosage: APPROXIMATELY 9 MONTHS AGO, PRESCRIBED TO USE ONE DROP IN BOTH EYES ONCE NIGHTLY
     Route: 047
     Dates: start: 2019

REACTIONS (9)
  - Condition aggravated [Not Recovered/Not Resolved]
  - Electrocardiogram abnormal [Not Recovered/Not Resolved]
  - Eye pruritus [Not Recovered/Not Resolved]
  - Dry eye [Not Recovered/Not Resolved]
  - Blood pressure increased [Not Recovered/Not Resolved]
  - Headache [Not Recovered/Not Resolved]
  - Intraocular pressure increased [Unknown]
  - Eye irritation [Not Recovered/Not Resolved]
  - Joint swelling [Not Recovered/Not Resolved]

NARRATIVE: CASE EVENT DATE: 201907
